FAERS Safety Report 23219738 (Version 3)
Quarter: 2024Q3

REPORT INFORMATION
  Report Type: Spontaneous
  Country: CA (occurrence: CA)
  Receive Date: 20231122
  Receipt Date: 20240927
  Transmission Date: 20241017
  Serious: Yes (Other)
  Sender: REGENERON
  Company Number: CA-SA-2023SA357112

PATIENT
  Age: 70 Year
  Sex: Male

DRUGS (1)
  1. LIBTAYO [Suspect]
     Active Substance: CEMIPLIMAB-RWLC
     Indication: Squamous cell carcinoma of skin
     Dosage: 350 MG, Q3W
     Route: 042
     Dates: start: 202008, end: 2020

REACTIONS (10)
  - Acute myocardial infarction [Recovered/Resolved]
  - Pneumonia [Recovered/Resolved]
  - Dyspnoea [Recovered/Resolved]
  - Fatigue [Unknown]
  - Rash [Unknown]
  - Blood creatinine abnormal [Unknown]
  - Lung consolidation [Unknown]
  - Troponin abnormal [Unknown]
  - Neck mass [Unknown]
  - Disease progression [Unknown]

NARRATIVE: CASE EVENT DATE: 20200101
